FAERS Safety Report 22166616 (Version 1)
Quarter: 2023Q2

REPORT INFORMATION
  Report Type: Spontaneous
  Country: JP (occurrence: JP)
  Receive Date: 20230403
  Receipt Date: 20230403
  Transmission Date: 20230721
  Serious: Yes (Other)
  Sender: FDA-Public Use
  Company Number: JP-sbiph-S000144910

PATIENT
  Age: 86 Year
  Sex: Male
  Weight: 62.8 kg

DRUGS (10)
  1. AMINOLEVULINIC ACID HYDROCHLORIDE [Suspect]
     Active Substance: AMINOLEVULINIC ACID HYDROCHLORIDE
     Indication: Bladder cancer
     Dosage: 1240 MG
     Route: 048
     Dates: start: 20221130, end: 20221130
  2. MICARDIS [Concomitant]
     Active Substance: TELMISARTAN
     Indication: Hypertension
     Dosage: 1/DAY
     Route: 048
  3. AMLODIPINE [Concomitant]
     Active Substance: AMLODIPINE BESYLATE
     Indication: Hypertension
     Dosage: 1/DAY
     Route: 048
  4. DONEPEZIL HYDROCHLORIDE [Concomitant]
     Active Substance: DONEPEZIL HYDROCHLORIDE
     Indication: Dementia
     Dosage: 1/DAY
     Route: 048
  5. FAMOTIDINE [Concomitant]
     Active Substance: FAMOTIDINE
     Dosage: 2/DAY
     Route: 048
  6. VALPROATE SODIUM [Concomitant]
     Active Substance: VALPROATE SODIUM
     Indication: Epilepsy
     Dosage: 2/DAY
     Route: 048
  7. PRAVASTATIN SODIUM [Concomitant]
     Active Substance: PRAVASTATIN SODIUM
     Indication: Hyperlipidaemia
     Dosage: 1/DAY
     Route: 048
  8. DOXAZOSIN M [Concomitant]
     Indication: Hypertension
     Dosage: 1/DAY
     Route: 048
  9. SILODOSIN OD [Concomitant]
     Indication: Benign prostatic hyperplasia
     Dosage: 1/DAY
     Route: 048
  10. Tsumura goshajinkigan extract granules for ethical use [Concomitant]
     Dosage: 3/DAY ; TIME INTERVAL:
     Route: 048

REACTIONS (3)
  - Loss of consciousness [Recovered/Resolved]
  - Fall [Recovered/Resolved]
  - Sinus bradycardia [Unknown]

NARRATIVE: CASE EVENT DATE: 20221130
